FAERS Safety Report 15113691 (Version 43)
Quarter: 2023Q2

REPORT INFORMATION
  Report Type: Other
  Country: DE (occurrence: None)
  Receive Date: 20180706
  Receipt Date: 20230501
  Transmission Date: 20230721
  Serious: Yes (Hospitalization, Other)
  Sender: FDA-Public Use
  Company Number: DE-ROCHE-2091662

PATIENT
  Age: 52 Year
  Sex: Male
  Weight: 90 kg

DRUGS (37)
  1. OCREVUS [Suspect]
     Active Substance: OCRELIZUMAB
     Indication: Relapsing-remitting multiple sclerosis
     Route: 042
     Dates: start: 20180305, end: 20180305
  2. OCREVUS [Suspect]
     Active Substance: OCRELIZUMAB
     Route: 042
     Dates: start: 20180319, end: 20180319
  3. OCREVUS [Suspect]
     Active Substance: OCRELIZUMAB
     Dosage: 11/SEP/2018 AND 02/SEP/2019, RECEIVED SAME SUBSEQUENT DOSE OF OCRELIZUMAB.
     Route: 042
     Dates: start: 20180821, end: 20190311
  4. OCREVUS [Suspect]
     Active Substance: OCRELIZUMAB
     Route: 042
     Dates: start: 20190902
  5. OCREVUS [Suspect]
     Active Substance: OCRELIZUMAB
     Route: 042
     Dates: start: 20200306
  6. OCREVUS [Suspect]
     Active Substance: OCRELIZUMAB
     Route: 042
     Dates: start: 20210305
  7. OCREVUS [Suspect]
     Active Substance: OCRELIZUMAB
     Route: 042
     Dates: start: 20210907
  8. OCREVUS [Suspect]
     Active Substance: OCRELIZUMAB
     Route: 042
     Dates: start: 20180228
  9. CORTISONE [Suspect]
     Active Substance: CORTISONE
     Indication: Premedication
     Route: 042
     Dates: start: 20190311, end: 20190311
  10. CORTISONE [Suspect]
     Active Substance: CORTISONE
     Dosage: 4X 500MG
     Route: 042
     Dates: start: 20210625
  11. CORTISONE [Suspect]
     Active Substance: CORTISONE
     Route: 042
     Dates: start: 20190311, end: 20190311
  12. DOMINAL (PROTHIPENDYL HYDROCHLORIDE) [Suspect]
     Active Substance: PROTHIPENDYL HYDROCHLORIDE
     Indication: Product used for unknown indication
     Route: 065
  13. OXYCODONE [Suspect]
     Active Substance: OXYCODONE
     Indication: Product used for unknown indication
     Dosage: NEXT DOSE: 6 MG
     Route: 065
  14. NAPROXEN [Concomitant]
     Active Substance: NAPROXEN
  15. CANDESARTAN [Concomitant]
     Active Substance: CANDESARTAN
     Indication: Pain
     Dosage: 14-16 MG
     Dates: start: 20180227
  16. CANDESARTAN [Concomitant]
     Active Substance: CANDESARTAN
  17. CANDESARTAN [Concomitant]
     Active Substance: CANDESARTAN
     Dosage: 1-1-0
  18. ZOPICLONE [Concomitant]
     Active Substance: ZOPICLONE
     Indication: Pain
     Route: 048
     Dates: start: 20180821
  19. ZOPICLONE [Concomitant]
     Active Substance: ZOPICLONE
     Route: 048
     Dates: start: 20170105
  20. ACETAMINOPHEN [Concomitant]
     Active Substance: ACETAMINOPHEN
  21. DULOXETINE [Concomitant]
     Active Substance: DULOXETINE
     Indication: Depression
     Route: 048
     Dates: start: 20180710
  22. DULOXETINE [Concomitant]
     Active Substance: DULOXETINE
     Route: 048
     Dates: start: 20181005
  23. DULOXETINE [Concomitant]
     Active Substance: DULOXETINE
     Route: 048
  24. DULOXETINE [Concomitant]
     Active Substance: DULOXETINE
  25. ACETYLCYSTEINE [Concomitant]
     Active Substance: ACETYLCYSTEINE
  26. DIMETHINDENE [Concomitant]
     Active Substance: DIMETHINDENE
     Route: 042
     Dates: start: 20190311, end: 20190311
  27. DIMETHINDENE [Concomitant]
     Active Substance: DIMETHINDENE
     Route: 042
     Dates: start: 2018
  28. MIRTAZAPINE [Concomitant]
     Active Substance: MIRTAZAPINE
     Dosage: IN THE EVENING
  29. HERBALS [Concomitant]
     Active Substance: HERBALS
  30. AMLODIPINE BESYLATE [Concomitant]
     Active Substance: AMLODIPINE BESYLATE
  31. AMLODIPINE BESYLATE [Concomitant]
     Active Substance: AMLODIPINE BESYLATE
     Dosage: 1-0-0
  32. NALOXONE HYDROCHLORIDE\TILIDINE HYDROCHLORIDE [Concomitant]
     Active Substance: NALOXONE HYDROCHLORIDE\TILIDINE HYDROCHLORIDE
     Dosage: 50 MG/4 MG
  33. TRIMIPRAMINE [Concomitant]
     Active Substance: TRIMIPRAMINE
     Dosage: DROPS AT NIGHT
  34. IBUPROFEN [Concomitant]
     Active Substance: IBUPROFEN
     Indication: Migraine
     Route: 048
     Dates: start: 2013
  35. QUETIAPINE [Concomitant]
     Active Substance: QUETIAPINE
     Dosage: 1/2 TABLET AS NEEDED AT NIGHT
  36. POLYETHYLENE GLYCOLS [Concomitant]
     Active Substance: POLYETHYLENE GLYCOLS
     Dosage: AS NEEDED
  37. PREGABALIN [Concomitant]
     Active Substance: PREGABALIN
     Dosage: 1-0-1

REACTIONS (44)
  - Multiple sclerosis [Unknown]
  - Therapeutic product effect decreased [Unknown]
  - Influenza like illness [Recovered/Resolved]
  - Cardiovascular insufficiency [Recovered/Resolved]
  - Diabetes mellitus [Not Recovered/Not Resolved]
  - Flushing [Recovered/Resolved]
  - Abnormal behaviour [Recovered/Resolved]
  - Myalgia [Recovered/Resolved]
  - Arthralgia [Recovering/Resolving]
  - Nasopharyngitis [Recovered/Resolved]
  - Inappropriate schedule of product administration [Unknown]
  - Nervousness [Recovering/Resolving]
  - Hypersensitivity [Unknown]
  - Pain [Unknown]
  - Depression [Unknown]
  - Anxiety [Unknown]
  - Back pain [Recovered/Resolved]
  - Pyrexia [Recovered/Resolved]
  - Asthenia [Recovered/Resolved]
  - Pyrexia [Recovered/Resolved]
  - Erythema [Recovering/Resolving]
  - Dizziness [Recovered/Resolved]
  - Fatigue [Recovered/Resolved]
  - Body temperature increased [Not Recovered/Not Resolved]
  - Paraesthesia [Recovered/Resolved]
  - Headache [Recovered/Resolved]
  - White blood cell count increased [Recovered/Resolved]
  - Influenza [Recovered/Resolved]
  - Infection [Recovered/Resolved]
  - C-reactive protein increased [Recovered/Resolved]
  - Blood immunoglobulin G decreased [Recovered/Resolved]
  - Neuralgia [Recovering/Resolving]
  - Hypotension [Recovered/Resolved]
  - Loss of consciousness [Recovered/Resolved]
  - Vaccination failure [Not Recovered/Not Resolved]
  - Headache [Recovered/Resolved]
  - Intraocular pressure test [Recovered/Resolved]
  - Nausea [Recovered/Resolved]
  - Vomiting [Recovered/Resolved]
  - Nausea [Recovered/Resolved]
  - Vomiting [Recovered/Resolved]
  - Coronavirus infection [Recovered/Resolved]
  - Migraine [Not Recovered/Not Resolved]
  - Sensory disturbance [Not Recovered/Not Resolved]

NARRATIVE: CASE EVENT DATE: 20180305
